FAERS Safety Report 5694416-3 (Version None)
Quarter: 2008Q2

REPORT INFORMATION
  Report Type: 
  Country: None (occurrence: None)
  Receive Date: 20080403
  Receipt Date: 20080403
  Transmission Date: 20081010
  Serious: No
  Sender: FDA-Public Use
  Company Number: None

PATIENT
  Sex: Female

DRUGS (1)
  1. COMPAZINE [Suspect]
     Indication: CYCLIC VOMITING SYNDROME
     Dosage: 5 MG  EVERY 6 HOURS PRN   IV
     Route: 042
     Dates: start: 20080315, end: 20080315

REACTIONS (2)
  - DYSKINESIA [None]
  - JOINT RANGE OF MOTION DECREASED [None]
